FAERS Safety Report 15920248 (Version 1)
Quarter: 2019Q1

REPORT INFORMATION
  Report Type: Spontaneous
  Country: US (occurrence: US)
  Receive Date: 20190205
  Receipt Date: 20190205
  Transmission Date: 20190417
  Serious: No
  Sender: FDA-Public Use
  Company Number: US-PFIZER INC-2019043801

PATIENT
  Sex: Female

DRUGS (1)
  1. NORVASC [Suspect]
     Active Substance: AMLODIPINE BESYLATE
     Dosage: 1/2 OF A 10 MG TABLET

REACTIONS (6)
  - Chest pain [Unknown]
  - Muscle spasms [Unknown]
  - Eructation [Unknown]
  - Flatulence [Unknown]
  - Nausea [Unknown]
  - Sensation of foreign body [Unknown]
